FAERS Safety Report 9414987 (Version 1)
Quarter: 2013Q3

REPORT INFORMATION
  Report Type: Spontaneous
  Country: US (occurrence: US)
  Receive Date: 20130723
  Receipt Date: 20130723
  Transmission Date: 20140515
  Serious: Yes (Other)
  Sender: FDA-Public Use
  Company Number: US-ROCHE-632805

PATIENT
  Age: 28 Year
  Sex: Female
  Weight: 59 kg

DRUGS (3)
  1. ACCUTANE [Suspect]
     Indication: ACNE
     Route: 048
     Dates: start: 20000502, end: 20000516
  2. ACCUTANE [Suspect]
     Route: 048
     Dates: start: 20000517, end: 20000919
  3. ORTHO TRI-CYCLEN [Concomitant]
     Indication: CONTRACEPTION

REACTIONS (10)
  - Inflammatory bowel disease [Unknown]
  - Colitis microscopic [Unknown]
  - Colitis ulcerative [Unknown]
  - Large intestine polyp [Unknown]
  - Rectal polyp [Unknown]
  - Dry mouth [Unknown]
  - Chapped lips [Unknown]
  - Dry skin [Unknown]
  - Blood glucose increased [Recovered/Resolved]
  - Blood triglycerides increased [Recovered/Resolved]
